FAERS Safety Report 4802511-3 (Version None)
Quarter: 2005Q4

REPORT INFORMATION
  Report Type: 
  Country: None (occurrence: None)
  Receive Date: 20051014
  Receipt Date: 20041229
  Transmission Date: 20060501
  Serious: Yes (Hospitalization, Other)
  Sender: FDA-Public Use
  Company Number: 2004108344

PATIENT
  Age: 82 Year
  Sex: Female

DRUGS (11)
  1. NEURONTIN [Suspect]
     Indication: HYPOAESTHESIA
     Dosage: 600 MG (300 MG, 2 IN 1 D), ORAL
     Route: 048
     Dates: start: 20010201, end: 20040901
  2. NEURONTIN [Suspect]
     Indication: NEUROPATHY
     Dosage: 600 MG (300 MG, 2 IN 1 D), ORAL
     Route: 048
     Dates: start: 20010201, end: 20040901
  3. CELEBREX [Suspect]
     Indication: OSTEOARTHRITIS
     Dosage: (200 MG), ORAL
     Route: 048
     Dates: start: 20020801, end: 20020901
  4. WARFARIN SODIUM [Concomitant]
  5. ESCITALOPRAM OXALATE [Concomitant]
  6. ALPRAZOLAM [Concomitant]
  7. METOPROLOL TARTRATE [Concomitant]
  8. PROPAFENONE HCL [Concomitant]
  9. LISINOPRIL [Concomitant]
  10. DOCUSATE SODIUM (DOCUSATE SODIUM) [Concomitant]
  11. PRAZOSIN GITS [Concomitant]

REACTIONS (3)
  - BLOOD PRESSURE INCREASED [None]
  - CEREBROVASCULAR ACCIDENT [None]
  - MOVEMENT DISORDER [None]
